FAERS Safety Report 16251226 (Version 1)
Quarter: 2019Q2

REPORT INFORMATION
  Report Type: Spontaneous
  Country: US (occurrence: US)
  Receive Date: 20190426
  Receipt Date: 20190426
  Transmission Date: 20190711
  Serious: No
  Sender: FDA-Public Use
  Company Number: None

PATIENT
  Age: 61 Year
  Sex: Male
  Weight: 101.25 kg

DRUGS (9)
  1. HYDROCHLOROTHIAZIDE 12.5 MG [Concomitant]
     Active Substance: HYDROCHLOROTHIAZIDE
  2. STELARA [Suspect]
     Active Substance: USTEKINUMAB
     Indication: PSORIATIC ARTHROPATHY
     Dosage: ?          QUANTITY:1 INJECTION(S);OTHER FREQUENCY:INJECTION;?
     Route: 058
     Dates: start: 20190410
  3. LISINOPRIL 10 MG [Concomitant]
     Active Substance: LISINOPRIL
  4. TRAMADOL 50 MG [Concomitant]
     Active Substance: TRAMADOL
  5. WARFARIN 4 MG [Concomitant]
     Active Substance: WARFARIN
  6. ATENOLOL 25 MG [Concomitant]
     Active Substance: ATENOLOL
  7. ATORVASTATIN 80 MG [Concomitant]
     Active Substance: ATORVASTATIN
  8. OTEZLA [Concomitant]
     Active Substance: APREMILAST
  9. ASPIRIN. [Concomitant]
     Active Substance: ASPIRIN

REACTIONS (2)
  - Insomnia [None]
  - Rhinorrhoea [None]

NARRATIVE: CASE EVENT DATE: 20190410
